FAERS Safety Report 5558593-7 (Version None)
Quarter: 2007Q4

REPORT INFORMATION
  Report Type: 
  Country: None (occurrence: None)
  Receive Date: 20071214
  Receipt Date: 20070910
  Transmission Date: 20080405
  Serious: No
  Sender: FDA-Public Use
  Company Number: US-ABBOTT-07P-163-0416610-00

PATIENT
  Sex: Female
  Weight: 78.542 kg

DRUGS (9)
  1. HUMIRA [Suspect]
     Indication: COLITIS ULCERATIVE
     Route: 058
     Dates: start: 20070701
  2. PANTOPRAZOLE SODIUM [Concomitant]
     Indication: DRUG USE FOR UNKNOWN INDICATION
  3. ROSIGLITAZONE MALEATE [Concomitant]
     Indication: DRUG USE FOR UNKNOWN INDICATION
  4. MESALAMINE [Concomitant]
     Indication: DRUG USE FOR UNKNOWN INDICATION
  5. OXYBUTYNIN CHLORIDE [Concomitant]
     Indication: DRUG USE FOR UNKNOWN INDICATION
  6. BLOOD PRESSURE PILL [Concomitant]
     Indication: DRUG USE FOR UNKNOWN INDICATION
  7. PREDNISONE [Concomitant]
     Indication: DRUG USE FOR UNKNOWN INDICATION
  8. INHALER [Concomitant]
     Indication: DRUG USE FOR UNKNOWN INDICATION
  9. LORATADINE [Concomitant]
     Indication: DRUG USE FOR UNKNOWN INDICATION
     Dates: start: 20070910

REACTIONS (8)
  - DYSPEPSIA [None]
  - FATIGUE [None]
  - FEELING HOT [None]
  - HYPOAESTHESIA [None]
  - INJECTION SITE REACTION [None]
  - NASAL CONGESTION [None]
  - NAUSEA [None]
  - OEDEMA PERIPHERAL [None]
